FAERS Safety Report 14692727 (Version 3)
Quarter: 2019Q1

REPORT INFORMATION
  Report Type: Spontaneous
  Country: US (occurrence: US)
  Receive Date: 20180329
  Receipt Date: 20190108
  Transmission Date: 20190417
  Serious: No
  Sender: FDA-Public Use
  Company Number: US-JNJFOC-20180313531

PATIENT
  Age: 41 Year
  Sex: Male
  Weight: 120.2 kg

DRUGS (2)
  1. STELARA [Suspect]
     Active Substance: USTEKINUMAB
     Indication: PSORIATIC ARTHROPATHY
     Route: 058
     Dates: start: 201712
  2. STELARA [Suspect]
     Active Substance: USTEKINUMAB
     Indication: PSORIASIS
     Route: 058
     Dates: start: 201712

REACTIONS (2)
  - Device deployment issue [Unknown]
  - Product dose omission [Unknown]

NARRATIVE: CASE EVENT DATE: 20180309
